FAERS Safety Report 8026092-9 (Version None)
Quarter: 2012Q1

REPORT INFORMATION
  Report Type: 
  Country: None (occurrence: None)
  Receive Date: 20120105
  Receipt Date: 20110527
  Transmission Date: 20120608
  Serious: No
  Sender: FDA-Public Use
  Company Number: US-ABBOTT-11P-163-0729788-00

PATIENT
  Sex: Female

DRUGS (1)
  1. SYNTHROID [Suspect]
     Indication: THYROID DISORDER
     Dosage: LOT/EXP NOT AVAILABE BECAUSE CAME IN PHARMACY VIAL - NOT STOCK BOTTLE
     Dates: start: 19810101

REACTIONS (1)
  - DYSGEUSIA [None]
